FAERS Safety Report 13076891 (Version 1)
Quarter: 2016Q4

REPORT INFORMATION
  Report Type: Spontaneous
  Country: US (occurrence: US)
  Receive Date: 20161230
  Receipt Date: 20161230
  Transmission Date: 20170207
  Serious: Yes (Other)
  Sender: FDA-Public Use
  Company Number: US-PFIZER INC-2016596791

PATIENT
  Age: 31 Year
  Sex: Male

DRUGS (1)
  1. NEURONTIN [Suspect]
     Active Substance: GABAPENTIN
     Dosage: 300 MG, UNK (3 TIMES A WEEK)

REACTIONS (2)
  - Gastrointestinal haemorrhage [Unknown]
  - Pain [Unknown]
